FAERS Safety Report 8995654 (Version 1)
Quarter: 2013Q1

REPORT INFORMATION
  Report Type: Spontaneous
  Country: US (occurrence: US)
  Receive Date: 20130103
  Receipt Date: 20130103
  Transmission Date: 20140127
  Serious: No
  Sender: FDA-Public Use
  Company Number: US-ABBOTT-12P-163-0896001-00

PATIENT
  Sex: Male
  Weight: 68.1 kg

DRUGS (15)
  1. SYNTHROID [Suspect]
     Indication: BLOOD THYROID STIMULATING HORMONE DECREASED
     Dates: start: 201109, end: 201111
  2. SYNTHROID [Suspect]
     Dates: start: 201111, end: 20120106
  3. SYNTHROID [Suspect]
  4. SYNTHROID [Suspect]
  5. SYNTHROID [Suspect]
     Indication: BLOOD THYROID STIMULATING HORMONE DECREASED
     Dates: start: 20120107, end: 20120107
  6. SYNTHROID [Suspect]
     Dates: start: 20120108
  7. SYNTHROID [Suspect]
     Dates: start: 201202
  8. SYNTHROID [Suspect]
     Dates: start: 201202
  9. SYNTHROID [Suspect]
     Dates: start: 201203
  10. SYNTHROID [Suspect]
     Dates: start: 201203
  11. SYNTHROID [Suspect]
     Dates: start: 201204
  12. SYNTHROID [Suspect]
     Dates: start: 201204
  13. SYNTHROID [Suspect]
     Dates: start: 201205
  14. SELENIUM [Concomitant]
     Indication: SUPPLEMENTATION THERAPY
  15. MULTIVITAMINS [Concomitant]
     Indication: VITAMIN SUPPLEMENTATION

REACTIONS (10)
  - Feeling jittery [Recovered/Resolved]
  - Drug ineffective [Not Recovered/Not Resolved]
  - Muscular weakness [Not Recovered/Not Resolved]
  - Fatigue [Not Recovered/Not Resolved]
  - Headache [Recovered/Resolved]
  - Constipation [Not Recovered/Not Resolved]
  - Depressed level of consciousness [Not Recovered/Not Resolved]
  - Somnolence [Not Recovered/Not Resolved]
  - Hypothyroidism [Not Recovered/Not Resolved]
  - Muscle tightness [Not Recovered/Not Resolved]
